FAERS Safety Report 10731297 (Version 1)
Quarter: 2015Q1

REPORT INFORMATION
  Report Type: Spontaneous
  Country: US (occurrence: US)
  Receive Date: 20150122
  Receipt Date: 20150122
  Transmission Date: 20150721
  Serious: Yes (Other)
  Sender: FDA-Public Use
  Company Number: US-ASTRAZENECA-2015SE05310

PATIENT
  Sex: Female

DRUGS (8)
  1. RHINOCORT AQUA [Suspect]
     Active Substance: BUDESONIDE
     Indication: EAR CONGESTION
     Dosage: 128 UG, 32 MCG, 2 SPRAYS INTO EACH NOSTRIL ONCE A DAY
     Route: 045
  2. RAMIPRIL. [Concomitant]
     Active Substance: RAMIPRIL
     Indication: BLOOD PRESSURE ABNORMAL
     Dates: end: 201401
  3. WARFARIN [Concomitant]
     Active Substance: WARFARIN
  4. SINGULAIR [Concomitant]
     Active Substance: MONTELUKAST SODIUM
     Indication: MULTIPLE ALLERGIES
  5. RHINOCORT AQUA [Suspect]
     Active Substance: BUDESONIDE
     Indication: SINUSITIS
     Route: 045
     Dates: start: 201501
  6. RHINOCORT AQUA [Suspect]
     Active Substance: BUDESONIDE
     Indication: SINUSITIS
     Dosage: 128 UG, 32 MCG, 2 SPRAYS INTO EACH NOSTRIL ONCE A DAY
     Route: 045
  7. LISINOPRIL. [Suspect]
     Active Substance: LISINOPRIL
     Indication: BLOOD PRESSURE ABNORMAL
     Route: 048
     Dates: start: 201401
  8. RHINOCORT AQUA [Suspect]
     Active Substance: BUDESONIDE
     Indication: EAR CONGESTION
     Route: 045
     Dates: start: 201501

REACTIONS (9)
  - Nasal congestion [Not Recovered/Not Resolved]
  - Nasopharyngitis [Recovering/Resolving]
  - Breast cancer [Unknown]
  - Intentional product misuse [Not Recovered/Not Resolved]
  - Sinus disorder [Not Recovered/Not Resolved]
  - Off label use [Not Recovered/Not Resolved]
  - Rash [Unknown]
  - Ear congestion [Not Recovered/Not Resolved]
  - Drug effect decreased [Not Recovered/Not Resolved]

NARRATIVE: CASE EVENT DATE: 2004
